FAERS Safety Report 9652516 (Version 3)
Quarter: 2014Q1

REPORT INFORMATION
  Report Type: Report from Study
  Country: US (occurrence: US)
  Receive Date: 20131029
  Receipt Date: 20140221
  Transmission Date: 20141002
  Serious: Yes (Hospitalization)
  Sender: FDA-Public Use
  Company Number: US-ACTELION-A-US2013-90263

PATIENT
  Age: 47 Year
  Sex: Female

DRUGS (4)
  1. TRACLEER [Suspect]
     Indication: PULMONARY ARTERIAL HYPERTENSION
     Dosage: UNK
     Route: 048
  2. SILDENAFIL [Concomitant]
  3. COUMADIN [Concomitant]
  4. REMODULIN [Concomitant]

REACTIONS (6)
  - Obstructive airways disorder [Recovered/Resolved]
  - Upper respiratory tract infection [Unknown]
  - Pneumonia [Unknown]
  - Sinus congestion [Recovered/Resolved]
  - Catheter site related reaction [Unknown]
  - Rash [Recovered/Resolved]
